FAERS Safety Report 6156443-1 (Version None)
Quarter: 2009Q2

REPORT INFORMATION
  Report Type: 
  Country: None (occurrence: None)
  Receive Date: 20090413
  Receipt Date: 20090403
  Transmission Date: 20091009
  Serious: Yes (Life-Threatening, Hospitalization)
  Sender: FDA-Public Use
  Company Number: 20096425

PATIENT
  Sex: Female

DRUGS (1)
  1. LIORESAL [Suspect]
     Indication: MUSCLE SPASTICITY
     Dosage: MCG, DAILY, INTRATHECAL
     Route: 037

REACTIONS (7)
  - DEPRESSED LEVEL OF CONSCIOUSNESS [None]
  - INCORRECT ROUTE OF DRUG ADMINISTRATION [None]
  - LETHARGY [None]
  - OVERDOSE [None]
  - RESPIRATORY ARREST [None]
  - RESPIRATORY DEPRESSION [None]
  - WRONG TECHNIQUE IN DRUG USAGE PROCESS [None]
